FAERS Safety Report 10102034 (Version 1)
Quarter: 2014Q2

REPORT INFORMATION
  Report Type: Spontaneous
  Country: US (occurrence: US)
  Receive Date: 20140424
  Receipt Date: 20140424
  Transmission Date: 20141212
  Serious: No
  Sender: FDA-Public Use
  Company Number: US-009507513-1403USA004601

PATIENT
  Age: 66 Year
  Sex: Female

DRUGS (7)
  1. ASPIRIN [Concomitant]
     Indication: PRODUCT USED FOR UNKNOWN INDICATION
     Dosage: 81 G, QD
  2. VIACTIV SOFT CALCIUM CHEWS [Concomitant]
     Indication: PRODUCT USED FOR UNKNOWN INDICATION
     Dosage: UNK, UNKNOWN
  3. CHOLECALCIFEROL [Concomitant]
     Indication: PRODUCT USED FOR UNKNOWN INDICATION
     Dosage: UNK, UNKNOWN
  4. MAGNESIUM (UNSPECIFIED) [Concomitant]
     Indication: PRODUCT USED FOR UNKNOWN INDICATION
     Dosage: UNK, UNKNOWN
  5. OMEGA-3 MARINE TRIGLYCERIDES [Concomitant]
     Indication: PRODUCT USED FOR UNKNOWN INDICATION
     Dosage: UNK, UNKNOWN
  6. MIRALAX [Suspect]
     Indication: DIVERTICULITIS
     Dosage: 17 G, BIW
     Route: 048
     Dates: start: 20131227, end: 20140214
  7. MIRALAX [Suspect]
     Indication: DISCOMFORT

REACTIONS (4)
  - Inappropriate schedule of drug administration [Unknown]
  - Product odour abnormal [Unknown]
  - Product taste abnormal [Unknown]
  - Off label use [Unknown]
